FAERS Safety Report 5255989-8 (Version None)
Quarter: 2007Q1

REPORT INFORMATION
  Report Type: 
  Country: None (occurrence: None)
  Receive Date: 20070302
  Receipt Date: 20070302
  Transmission Date: 20070707
  Serious: Yes (Hospitalization)
  Sender: FDA-Public Use
  Company Number: None

PATIENT
  Age: 79 Year
  Sex: Male
  Weight: 79 kg

DRUGS (13)
  1. AVELOX [Suspect]
     Indication: CHRONIC OBSTRUCTIVE PULMONARY DISEASE
     Dosage: 400MG  DAILY  PO TOOK 1 TAB, RX FOR 7 DAYS
     Route: 048
  2. AVELOX [Suspect]
     Indication: PNEUMONIA
     Dosage: 400MG  DAILY  PO TOOK 1 TAB, RX FOR 7 DAYS
     Route: 048
  3. ROCEPHIN [Suspect]
     Indication: CHRONIC OBSTRUCTIVE PULMONARY DISEASE
     Dosage: 1G  ONCE  IM
     Route: 030
  4. ROCEPHIN [Suspect]
     Indication: PNEUMONIA
     Dosage: 1G  ONCE  IM
     Route: 030
  5. VYTORIN [Concomitant]
  6. LISINOPRIL [Concomitant]
  7. ASPIRIN [Concomitant]
  8. MAXZIDE [Concomitant]
  9. ADVAIR DISKUS 100/50 [Concomitant]
  10. COMBIVENT [Concomitant]
  11. CENTRIUM [Concomitant]
  12. OSTEOBIOFLEX [Concomitant]
  13. ULTRAM [Concomitant]

REACTIONS (2)
  - DYSPNOEA [None]
  - HYPERSENSITIVITY [None]
